FAERS Safety Report 14908205 (Version 1)
Quarter: 2018Q2

REPORT INFORMATION
  Report Type: Report from Study
  Country: US (occurrence: US)
  Receive Date: 20180517
  Receipt Date: 20180517
  Transmission Date: 20180711
  Serious: Yes (Other)
  Sender: FDA-Public Use
  Company Number: US-ROCHE-2110289

PATIENT
  Sex: Female
  Weight: 68.1 kg

DRUGS (12)
  1. BENADRYL [Concomitant]
     Active Substance: DIPHENHYDRAMINE HYDROCHLORIDE
     Dosage: ONGOING:YES
     Route: 065
  2. FLONASE [Concomitant]
     Active Substance: FLUTICASONE PROPIONATE
     Dosage: ONGOING:YES
     Route: 065
  3. XOPENEX [Concomitant]
     Active Substance: LEVALBUTEROL HYDROCHLORIDE
  4. DUONEB [Concomitant]
     Active Substance: ALBUTEROL SULFATE\IPRATROPIUM BROMIDE
     Dosage: ONGOING:YES
     Route: 065
  5. XOLAIR [Suspect]
     Active Substance: OMALIZUMAB
     Indication: URTICARIA
     Route: 065
     Dates: start: 2015
  6. ATARAX [Concomitant]
     Active Substance: HYDROXYZINE HYDROCHLORIDE
  7. XOLAIR [Suspect]
     Active Substance: OMALIZUMAB
     Indication: ASTHMA
     Dosage: REPORTED AS 600 MG
     Route: 065
     Dates: start: 2015
  8. IPRATROPIUM [Concomitant]
     Active Substance: IPRATROPIUM
     Dosage: ONGOING:YES
     Route: 065
  9. PRILOSEC [Concomitant]
     Active Substance: OMEPRAZOLE MAGNESIUM
     Dosage: ONGOING:YES
     Route: 065
  10. SALBUTAMOL [Concomitant]
     Active Substance: ALBUTEROL
     Dosage: ONGOING:YES
     Route: 065
  11. ASPIRIN. [Concomitant]
     Active Substance: ASPIRIN
     Dosage: ONGOING:NO
     Route: 065
  12. ALVESCO [Concomitant]
     Active Substance: CICLESONIDE
     Dosage: ONGOING:YES
     Route: 065

REACTIONS (20)
  - Flushing [Unknown]
  - Cerebral disorder [Unknown]
  - Post-traumatic stress disorder [Unknown]
  - Malaise [Unknown]
  - Anaphylactic reaction [Unknown]
  - Cognitive disorder [Unknown]
  - Urticaria [Unknown]
  - Cough [Unknown]
  - Impaired gastric emptying [Unknown]
  - Mastocytosis [Unknown]
  - Collagen disorder [Unknown]
  - Postural orthostatic tachycardia syndrome [Unknown]
  - Ehlers-Danlos syndrome [Unknown]
  - Vocal cord dysfunction [Unknown]
  - Wheezing [Unknown]
  - Epistaxis [Unknown]
  - Ill-defined disorder [Unknown]
  - Laryngospasm [Unknown]
  - Feeling abnormal [Unknown]
  - Autonomic nervous system imbalance [Unknown]
